FAERS Safety Report 10748843 (Version 1)
Quarter: 2015Q1

REPORT INFORMATION
  Report Type: Spontaneous
  Country: US (occurrence: None)
  Receive Date: 20150128
  Receipt Date: 20150128
  Transmission Date: 20150721
  Serious: No
  Sender: FDA-Public Use
  Company Number: None

PATIENT
  Age: 64 Year
  Sex: Female
  Weight: 68.04 kg

DRUGS (2)
  1. ESCITALOPRAM [Suspect]
     Active Substance: ESCITALOPRAM OXALATE
     Indication: ANXIETY
     Dosage: 10 MG ONCE A DAY, ONCE DAILY, TAKEN BY MOUTH?FOR A YEAR AND HALF
     Route: 048
  2. ESCITALOPRAM [Suspect]
     Active Substance: ESCITALOPRAM OXALATE
     Indication: DEPRESSION
     Dosage: 10 MG ONCE A DAY, ONCE DAILY, TAKEN BY MOUTH?FOR A YEAR AND HALF
     Route: 048

REACTIONS (3)
  - Arthralgia [None]
  - Libido decreased [None]
  - Weight increased [None]

NARRATIVE: CASE EVENT DATE: 20150101
